FAERS Safety Report 7008040-3 (Version None)
Quarter: 2010Q3

REPORT INFORMATION
  Report Type: 
  Country: None (occurrence: None)
  Receive Date: 20100920
  Receipt Date: 20100913
  Transmission Date: 20110219
  Serious: Yes (Hospitalization)
  Sender: FDA-Public Use
  Company Number: 2010SP048586

PATIENT
  Age: 35 Year
  Sex: Female

DRUGS (2)
  1. PUREGON (FOLLITROPIN BETA / 01348901/ ) [Suspect]
     Indication: IN VITRO FERTILISATION
     Dosage: 125 IU;QD;SC
     Route: 058
     Dates: start: 20100428, end: 20100502
  2. SUPREFACT (BUSERELIN ACETATE) [Suspect]
     Indication: IN VITRO FERTILISATION
     Dosage: 2 MG;QD;SC
     Route: 058
     Dates: start: 20100428, end: 20100502

REACTIONS (5)
  - ANURIA [None]
  - CLONUS [None]
  - LOSS OF CONSCIOUSNESS [None]
  - MALAISE [None]
  - UNEVALUABLE EVENT [None]
